FAERS Safety Report 20783863 (Version 1)
Quarter: 2022Q2

REPORT INFORMATION
  Report Type: Spontaneous
  Country: ES (occurrence: ES)
  Receive Date: 20220504
  Receipt Date: 20220504
  Transmission Date: 20220721
  Serious: Yes (Hospitalization, Other)
  Sender: FDA-Public Use
  Company Number: ES-Fresenius Kabi-FK202205088

PATIENT
  Age: 35 Year
  Sex: Female

DRUGS (5)
  1. OXYTOCIN [Suspect]
     Active Substance: OXYTOCIN
     Indication: Labour induction
     Dosage: 5IU DILUTED IN  500ML OF SODIUM CHLORIDE
     Route: 042
  2. SODIUM CHLORIDE [Suspect]
     Active Substance: SODIUM CHLORIDE
     Indication: Labour induction
     Dosage: OXYTOCIN 5IU DILUTED IN  500ML OF SODIUM CHLORIDE
     Route: 042
  3. DEXTROSE [Suspect]
     Active Substance: DEXTROSE
     Indication: Drug therapy
     Route: 065
  4. SCOPOLAMINE [Suspect]
     Active Substance: SCOPOLAMINE
     Indication: Product used for unknown indication
     Dosage: UNKNOWN
     Route: 065
  5. AMPICILLIN [Suspect]
     Active Substance: AMPICILLIN
     Indication: Product used for unknown indication
     Dosage: UNKNOWN
     Route: 042

REACTIONS (3)
  - Cardiac failure acute [Recovered/Resolved]
  - Bradycardia [Recovered/Resolved]
  - Maternal exposure during delivery [Recovered/Resolved]
